FAERS Safety Report 4948956-2 (Version None)
Quarter: 2006Q1

REPORT INFORMATION
  Report Type: 
  Country: None (occurrence: None)
  Receive Date: 20060315
  Receipt Date: 20060227
  Transmission Date: 20060701
  Serious: Yes (Other)
  Sender: FDA-Public Use
  Company Number: USA050597759

PATIENT
  Age: 58 Year
  Sex: Female
  Weight: 50.9 kg

DRUGS (6)
  1. FORTEO [Suspect]
     Indication: OSTEOPOROSIS
     Dosage: 20 UG, DAILY (1/D),
     Dates: start: 20041001
  2. ZOCOR [Concomitant]
  3. FLEXERIL [Concomitant]
  4. TRAZODONE HCL [Concomitant]
  5. FORTEO PEN, 250MCG/ML (3ML) (FORTEO PEN 250 MCG/ML (3ML)) PEN, DISPOSA [Concomitant]
  6. FORTEO [Concomitant]

REACTIONS (4)
  - ANTINUCLEAR ANTIBODY POSITIVE [None]
  - BLOOD HUMAN CHORIONIC GONADOTROPIN INCREASED [None]
  - HIV TEST POSITIVE [None]
  - UTERINE LEIOMYOMA [None]
